FAERS Safety Report 5789291-2 (Version None)
Quarter: 2008Q2

REPORT INFORMATION
  Report Type: 
  Country: None (occurrence: None)
  Receive Date: 20080623
  Receipt Date: 20080611
  Transmission Date: 20081010
  Serious: Yes (Hospitalization)
  Sender: FDA-Public Use
  Company Number: 2008SP006192

PATIENT
  Age: 58 Year
  Sex: Male
  Weight: 79 kg

DRUGS (5)
  1. TEMODAL [Suspect]
     Indication: GLIOBLASTOMA MULTIFORME
     Dosage: 135 MG;QD; PO; 135 MG; QD; PO; 280 MG; QD; PO; 200 MG/M2; QD; PO
     Route: 048
     Dates: start: 20071119, end: 20071227
  2. TEMODAL [Suspect]
     Indication: GLIOBLASTOMA MULTIFORME
     Dosage: 135 MG;QD; PO; 135 MG; QD; PO; 280 MG; QD; PO; 200 MG/M2; QD; PO
     Route: 048
     Dates: start: 20080228, end: 20080303
  3. TEMODAL [Suspect]
     Indication: GLIOBLASTOMA MULTIFORME
     Dosage: 135 MG;QD; PO; 135 MG; QD; PO; 280 MG; QD; PO; 200 MG/M2; QD; PO
     Route: 048
     Dates: start: 20071231
  4. TEMODAL [Suspect]
     Indication: GLIOBLASTOMA MULTIFORME
     Dosage: 135 MG;QD; PO; 135 MG; QD; PO; 280 MG; QD; PO; 200 MG/M2; QD; PO
     Route: 048
     Dates: start: 20080131
  5. ATIVAN [Suspect]
     Indication: DRUG USE FOR UNKNOWN INDICATION
     Dosage: 16 MG;

REACTIONS (6)
  - ACCIDENTAL OVERDOSE [None]
  - GENERAL PHYSICAL HEALTH DETERIORATION [None]
  - HYDROCEPHALUS [None]
  - NEUROLOGICAL SYMPTOM [None]
  - SOMNOLENCE [None]
  - WRONG DRUG ADMINISTERED [None]
